FAERS Safety Report 5723482-1 (Version None)
Quarter: 2008Q2

REPORT INFORMATION
  Report Type: 
  Country: None (occurrence: None)
  Receive Date: 20080425
  Receipt Date: 20080418
  Transmission Date: 20081010
  Serious: Yes (Life-Threatening, Hospitalization, Disabling)
  Sender: FDA-Public Use
  Company Number: 6042381

PATIENT
  Age: 86 Year
  Sex: Female

DRUGS (8)
  1. CONCOR (BISOPROLOL FUMARATE) [Suspect]
     Indication: DRUG USE FOR UNKNOWN INDICATION
     Dosage: 5 MG (5 MG)
     Dates: start: 20070115, end: 20070117
  2. RISPERDAL [Suspect]
     Indication: DRUG USE FOR UNKNOWN INDICATION
     Dosage: 2 MG (1 MG,2 IN 1)
     Dates: start: 20061229, end: 20070122
  3. RAMIPRIL [Suspect]
     Indication: DRUG USE FOR UNKNOWN INDICATION
     Dosage: 5 MG (2.5 MG,2 IN 1 D)
     Dates: start: 20070101, end: 20070122
  4. LASIX [Suspect]
     Indication: DRUG USE FOR UNKNOWN INDICATION
     Dosage: 40-80 MG AS NEEDED
     Dates: start: 20070112, end: 20070122
  5. PANTOPRAZOLE SODIUM [Concomitant]
  6. ACETYLSALICYLIC ACID SRT [Concomitant]
  7. MEMANTINE HCL [Concomitant]
  8. ACETYLCYSTEINE [Concomitant]

REACTIONS (3)
  - BLOOD POTASSIUM DECREASED [None]
  - CEREBRAL ARTERY EMBOLISM [None]
  - CEREBRAL INFARCTION [None]
